FAERS Safety Report 4382542-0 (Version None)
Quarter: 2004Q2

REPORT INFORMATION
  Report Type: 
  Country: None (occurrence: None)
  Receive Date: 20040609
  Receipt Date: 20040524
  Transmission Date: 20050107
  Serious: Yes (Death)
  Sender: FDA-Public Use
  Company Number: 236432

PATIENT
  Age: 76 Year
  Sex: Female
  Weight: 55 kg

DRUGS (6)
  1. NOVOSEVEN [Suspect]
     Indication: ACQUIRED HAEMOPHILIA
     Dosage: INTRAVENOUS
     Route: 042
     Dates: start: 20040330, end: 20040401
  2. NOVOSEVEN [Suspect]
     Indication: ACQUIRED HAEMOPHILIA
     Dosage: INTRAVENOUS
     Route: 042
     Dates: start: 20040407, end: 20040408
  3. THROMBIN LOCAL SOLUTION [Concomitant]
  4. DOPAMINE HYDROCHLORIED (DEPAMINE HYDROCHLORIDE) [Concomitant]
  5. DOUBTAMINE HYDROCHLORIDE (DOUBTAMINE HYDROCHLORIED) [Concomitant]
  6. METOCLOPRAMIDE (METOCLOPRAMINE) [Concomitant]

REACTIONS (5)
  - BACK PAIN [None]
  - BLOOD PRESSURE DECREASED [None]
  - GINGIVAL BLEEDING [None]
  - HAEMORRHAGE SUBCUTANEOUS [None]
  - THERAPEUTIC RESPONSE DECREASED [None]
